FAERS Safety Report 25201131 (Version 1)
Quarter: 2025Q2

REPORT INFORMATION
  Report Type: Spontaneous
  Country: CN (occurrence: CN)
  Receive Date: 20250416
  Receipt Date: 20250416
  Transmission Date: 20250716
  Serious: Yes (Hospitalization)
  Sender: BAXTER
  Company Number: None

PATIENT
  Age: 35 Year
  Sex: Female
  Weight: 45 kg

DRUGS (4)
  1. CYCLOPHOSPHAMIDE [Suspect]
     Active Substance: CYCLOPHOSPHAMIDE
     Indication: Breast cancer female
     Dosage: 850 MG, QD
     Route: 041
     Dates: start: 20250312, end: 20250312
  2. SODIUM CHLORIDE [Suspect]
     Active Substance: SODIUM CHLORIDE
     Dosage: 50 ML, ONCE A DAY (CYCLOPHOSPHAMIDE 850 MG + 50 ML 0.9% SODIUM CHLORIDE INJECTION)
     Route: 065
     Dates: start: 20250312, end: 20250312
  3. SODIUM CHLORIDE [Suspect]
     Active Substance: SODIUM CHLORIDE
     Dosage: 250 ML, ONCE A DAY (DOCETAXEL INJECTION 110 MG + 250 ML 0.9% SODIUM CHLORIDE INJECTION)
     Route: 065
     Dates: start: 20250312, end: 20250312
  4. DOCETAXEL [Suspect]
     Active Substance: DOCETAXEL
     Indication: Breast cancer female
     Dosage: 110 MG, QD
     Route: 041
     Dates: start: 20250312, end: 20250312

REACTIONS (2)
  - Hepatic function abnormal [Recovering/Resolving]
  - Hepatic enzyme increased [Recovering/Resolving]

NARRATIVE: CASE EVENT DATE: 20250330
